FAERS Safety Report 19164904 (Version 1)
Quarter: 2021Q2

REPORT INFORMATION
  Report Type: Spontaneous
  Country: PT (occurrence: PT)
  Receive Date: 20210421
  Receipt Date: 20210421
  Transmission Date: 20210717
  Serious: Yes (Death, Other)
  Sender: FDA-Public Use
  Company Number: PT-AMGEN-PRTSP2021057289

PATIENT
  Age: 40 Year
  Sex: Female

DRUGS (4)
  1. FULVESTRANT. [Concomitant]
     Active Substance: FULVESTRANT
     Indication: METASTASES TO BONE
  2. XGEVA [Suspect]
     Active Substance: DENOSUMAB
     Indication: METASTASES TO BONE
     Dosage: UNK
     Route: 065
  3. PACLITAXEL. [Concomitant]
     Active Substance: PACLITAXEL
     Indication: METASTASES TO BONE
  4. PALBOCICLIB [Concomitant]
     Active Substance: PALBOCICLIB
     Indication: METASTASES TO BONE

REACTIONS (2)
  - Death [Fatal]
  - Breast cancer metastatic [Unknown]
